FAERS Safety Report 6197724-5 (Version None)
Quarter: 2009Q2

REPORT INFORMATION
  Report Type: 
  Country: None (occurrence: None)
  Receive Date: 20090521
  Receipt Date: 20090514
  Transmission Date: 20091009
  Serious: No
  Sender: FDA-Public Use
  Company Number: US-B.I. PHARMACEUTICALS,INC./RIDGEFIELD-2009-BP-05454BP

PATIENT
  Age: 39 Year
  Sex: Male
  Weight: 95.25 kg

DRUGS (5)
  1. FLOMAX [Suspect]
     Indication: BENIGN PROSTATIC HYPERPLASIA
     Dosage: .4MG
     Dates: start: 20081215
  2. CYMBALTA [Concomitant]
     Dates: start: 20080626
  3. LOTREL [Concomitant]
     Dates: start: 20080626
  4. ZETIA [Concomitant]
     Dates: start: 20080923
  5. KLONOPIN [Concomitant]
     Dates: start: 20080626

REACTIONS (1)
  - PENIS DISORDER [None]
